FAERS Safety Report 14147809 (Version 1)
Quarter: 2017Q4

REPORT INFORMATION
  Report Type: Spontaneous
  Country: US (occurrence: US)
  Receive Date: 20171031
  Receipt Date: 20171031
  Transmission Date: 20180321
  Serious: No
  Sender: FDA-Public Use
  Company Number: US-ROMARKLABS-2017-US-000058

PATIENT
  Age: 57 Year
  Sex: Female

DRUGS (1)
  1. ALINIA [Suspect]
     Active Substance: NITAZOXANIDE
     Indication: GASTROINTESTINAL BACTERIAL OVERGROWTH
     Dosage: 1 TAB TWICE PER DAY
     Route: 048
     Dates: start: 20170511, end: 20170516

REACTIONS (8)
  - Syncope [Recovered/Resolved]
  - Headache [Recovered/Resolved]
  - Nausea [Recovered/Resolved]
  - Rectal haemorrhage [Recovered/Resolved]
  - Gastrooesophageal reflux disease [Recovered/Resolved]
  - Diarrhoea [Recovered/Resolved]
  - Abdominal pain [Recovered/Resolved]
  - Weight decreased [Recovered/Resolved]

NARRATIVE: CASE EVENT DATE: 201705
